FAERS Safety Report 6490782-X (Version None)
Quarter: 2009Q4

REPORT INFORMATION
  Report Type: 
  Country: None (occurrence: None)
  Receive Date: 20091211
  Receipt Date: 20091203
  Transmission Date: 20100525
  Serious: Yes (Hospitalization)
  Sender: FDA-Public Use
  Company Number: US-JNJFOC-20091201421

PATIENT
  Age: 48 Year
  Sex: Female

DRUGS (3)
  1. INTELENCE [Suspect]
     Route: 048
  2. INTELENCE [Suspect]
     Indication: HIV INFECTION
     Route: 048
  3. TRUVADA [Concomitant]
     Indication: HIV INFECTION

REACTIONS (3)
  - AUTOIMMUNE HEPATITIS [None]
  - IMMUNE RECONSTITUTION SYNDROME [None]
  - PERICARDIAL EFFUSION [None]
